FAERS Safety Report 12758832 (Version 1)
Quarter: 2016Q3

REPORT INFORMATION
  Report Type: Spontaneous
  Country: US (occurrence: JP)
  Receive Date: 20160919
  Receipt Date: 20160919
  Transmission Date: 20161109
  Serious: No
  Sender: FDA-Public Use
  Company Number: JP-FRI-1000087460

PATIENT
  Age: 28 Year
  Sex: Male

DRUGS (3)
  1. ASENAPINE [Suspect]
     Active Substance: ASENAPINE
     Indication: SCHIZOPHRENIA
     Dosage: 10 MG
     Route: 060
     Dates: start: 20160802, end: 20160822
  2. LUNESTA [Suspect]
     Active Substance: ESZOPICLONE
     Indication: PRODUCT USED FOR UNKNOWN INDICATION
     Route: 048
  3. ASENAPINE [Suspect]
     Active Substance: ASENAPINE
     Dosage: 5 MG
     Route: 060
     Dates: start: 20160823

REACTIONS (2)
  - Pruritus [Unknown]
  - Insomnia [Recovered/Resolved]

NARRATIVE: CASE EVENT DATE: 20160822
